FAERS Safety Report 18632240 (Version 1)
Quarter: 2020Q4

REPORT INFORMATION
  Report Type: Spontaneous
  Country: US (occurrence: US)
  Receive Date: 20201218
  Receipt Date: 20201218
  Transmission Date: 20210114
  Serious: Yes (Other)
  Sender: FDA-Public Use
  Company Number: US-SA-2020SA361129

PATIENT

DRUGS (1)
  1. ZANTAC [Suspect]
     Active Substance: RANITIDINE HYDROCHLORIDE
     Dosage: UNK
     Dates: start: 199206, end: 201910

REACTIONS (3)
  - Oesophageal carcinoma [Unknown]
  - Nasopharyngeal cancer [Unknown]
  - Oral neoplasm [Unknown]

NARRATIVE: CASE EVENT DATE: 201612
